FAERS Safety Report 5269194-2 (Version None)
Quarter: 2007Q1

REPORT INFORMATION
  Report Type: 
  Country: None (occurrence: None)
  Receive Date: 20070319
  Receipt Date: 20070226
  Transmission Date: 20070707
  Serious: Yes (Other)
  Sender: FDA-Public Use
  Company Number: US-SHR-US-2007-009422

PATIENT
  Age: 51 Year
  Sex: Male

DRUGS (2)
  1. BETASERON [Suspect]
     Dosage: 2 MIU, EVERY 2D
     Route: 058
     Dates: start: 20070216
  2. ATENOLOL [Concomitant]
     Indication: BLOOD PRESSURE

REACTIONS (5)
  - ASTHENIA [None]
  - BLOOD PRESSURE INCREASED [None]
  - FLUSHING [None]
  - INJECTION SITE ERYTHEMA [None]
  - PERSONALITY CHANGE [None]
